FAERS Safety Report 5893430-2 (Version None)
Quarter: 2008Q3

REPORT INFORMATION
  Report Type: 
  Country: None (occurrence: None)
  Receive Date: 20080922
  Receipt Date: 20080922
  Transmission Date: 20090109
  Serious: Yes (Life-Threatening)
  Sender: FDA-Public Use
  Company Number: None

PATIENT
  Age: 59 Year
  Sex: Male
  Weight: 88.4514 kg

DRUGS (1)
  1. AMBIEN [Suspect]
     Indication: INSOMNIA
     Dosage: ONCE AT NIGHT
     Dates: start: 20080908, end: 20080919

REACTIONS (3)
  - ABNORMAL BEHAVIOUR [None]
  - SLEEP-RELATED EATING DISORDER [None]
  - SOMNAMBULISM [None]
